FAERS Safety Report 5520723-0 (Version None)
Quarter: 2007Q4

REPORT INFORMATION
  Report Type: 
  Country: None (occurrence: None)
  Receive Date: 20071119
  Receipt Date: 20071107
  Transmission Date: 20080405
  Serious: Yes (Hospitalization)
  Sender: FDA-Public Use
  Company Number: AU-PFIZER INC-2007094296

PATIENT

DRUGS (15)
  1. IRINOTECAN HCL [Suspect]
     Indication: COLORECTAL CANCER METASTATIC
  2. FLUOROURACIL [Suspect]
     Indication: COLORECTAL CANCER METASTATIC
  3. FLUOROURACIL [Suspect]
  4. FLUOROURACIL [Suspect]
  5. CALCIUM FOLINATE [Suspect]
     Indication: COLORECTAL CANCER METASTATIC
  6. WARFARIN SODIUM [Concomitant]
     Route: 048
  7. PARACETAMOL [Concomitant]
     Dosage: DAILY DOSE:1GRAM
     Route: 048
  8. FELODIPINE [Concomitant]
     Dosage: DAILY DOSE:10MG
     Route: 048
  9. COLOXYL WITH SENNA [Concomitant]
  10. METOCLOPRAMIDE [Concomitant]
     Dosage: DAILY DOSE:10MG
     Route: 048
  11. ISOSORBIDE MONONITRATE [Concomitant]
     Dosage: DAILY DOSE:60MG
     Route: 048
  12. ACETYLSALICYLIC ACID SRT [Concomitant]
     Dosage: DAILY DOSE:100MG
     Route: 048
  13. METOPROLOL TARTRATE [Concomitant]
     Dosage: DAILY DOSE:475MG
     Route: 048
  14. ALL OTHER THERAPEUTIC PRODUCTS [Concomitant]
     Route: 048
  15. MORPHINE [Concomitant]
     Dosage: TEXT:5 - 10 MG-FREQ:PRN
     Route: 048

REACTIONS (3)
  - HAEMATURIA [None]
  - NAUSEA [None]
  - PYREXIA [None]
